FAERS Safety Report 14868656 (Version 4)
Quarter: 2018Q3

REPORT INFORMATION
  Report Type: Spontaneous
  Country: US (occurrence: US)
  Receive Date: 20180509
  Receipt Date: 20180801
  Transmission Date: 20181010
  Serious: No
  Sender: FDA-Public Use
  Company Number: US-PFIZER INC-2017524286

PATIENT
  Age: 55 Year
  Sex: Female

DRUGS (32)
  1. DOCETAXEL. [Suspect]
     Active Substance: DOCETAXEL
     Indication: INVASIVE DUCTAL BREAST CARCINOMA
     Dosage: 113 MG, CYCLIC, EVERY THREE WEEKS 6 CYCLES
     Dates: start: 20131031
  2. PROLIA [Concomitant]
     Active Substance: DENOSUMAB
     Dosage: UNK
  3. CIPRO [Concomitant]
     Active Substance: CIPROFLOXACIN HYDROCHLORIDE
     Dosage: UNK
     Dates: start: 2014
  4. SULFAMETHOXAZOLE [Concomitant]
     Active Substance: SULFAMETHOXAZOLE
     Dosage: UNK
     Dates: start: 2014
  5. PARAPLATIN [Concomitant]
     Active Substance: CARBOPLATIN
     Dosage: 709 MG, UNK
     Dates: start: 20140213, end: 20140213
  6. ONDANSETRON HCL [Concomitant]
     Active Substance: ONDANSETRON HYDROCHLORIDE
     Dosage: UNK
     Dates: start: 2010, end: 2015
  7. DOCETAXEL. [Suspect]
     Active Substance: DOCETAXEL
     Dosage: 114 MG, CYCLIC, EVERY THREE WEEKS 6 CYCLES
     Dates: start: 20131121
  8. DOCETAXEL. [Suspect]
     Active Substance: DOCETAXEL
     Dosage: 115 MG, CYCLIC, EVERY THREE WEEKS 6 CYCLES
     Dates: start: 20131212
  9. TAXOTERE [Suspect]
     Active Substance: DOCETAXEL
     Dosage: 115 MG, CYCLIC, EVERY THREE WEEKS 6 CYCLES
     Dates: start: 20131212
  10. PARAPLATIN [Concomitant]
     Active Substance: CARBOPLATIN
     Dosage: 701 MG, UNK
     Dates: start: 20140123
  11. EXEMESTANE. [Concomitant]
     Active Substance: EXEMESTANE
     Dosage: UNK
     Dates: start: 2014
  12. FLUTICASONE. [Concomitant]
     Active Substance: FLUTICASONE
     Dosage: UNK
     Dates: start: 2014
  13. TAXOTERE [Suspect]
     Active Substance: DOCETAXEL
     Indication: INVASIVE DUCTAL BREAST CARCINOMA
     Dosage: 113 MG, CYCLIC, EVERY THREE WEEKS 6 CYCLES
     Dates: start: 20131031
  14. TAXOTERE [Suspect]
     Active Substance: DOCETAXEL
     Dosage: 119 MG, CYCLIC, EVERY THREE WEEKS 6 CYCLES
     Dates: start: 20140213, end: 20140213
  15. PARAPLATIN [Concomitant]
     Active Substance: CARBOPLATIN
     Indication: CHEMOTHERAPY
     Dosage: 659 MG, UNK
     Dates: start: 20131031
  16. NASONEX [Concomitant]
     Active Substance: MOMETASONE FUROATE
     Dosage: UNK
     Dates: start: 2014
  17. DOCETAXEL. [Suspect]
     Active Substance: DOCETAXEL
     Dosage: 119 MG, CYCLIC, EVERY THREE WEEKS 6 CYCLES
     Dates: start: 20140213, end: 20140213
  18. TAXOTERE [Suspect]
     Active Substance: DOCETAXEL
     Dosage: 114 MG, CYCLIC, EVERY THREE WEEKS 6 CYCLES
     Dates: start: 20131121
  19. PARAPLATIN [Concomitant]
     Active Substance: CARBOPLATIN
     Dosage: 672 MG, UNK
     Dates: start: 20131121
  20. DEXAMETHASONE. [Concomitant]
     Active Substance: DEXAMETHASONE
     Dosage: UNK
     Dates: start: 2010, end: 2015
  21. LEVOFLOXACIN. [Concomitant]
     Active Substance: LEVOFLOXACIN
     Dosage: UNK
     Dates: start: 2014
  22. ESTRACE [Concomitant]
     Active Substance: ESTRADIOL
     Dosage: UNK
     Dates: start: 2014
  23. NEULASTA [Concomitant]
     Active Substance: PEGFILGRASTIM
     Dosage: UNK
  24. PARAPLATIN [Concomitant]
     Active Substance: CARBOPLATIN
     Dosage: 677 MG, UNK
     Dates: start: 20131212
  25. TRASTUZUMAB. [Concomitant]
     Active Substance: TRASTUZUMAB
     Dosage: UNK
  26. LORAZEPAM. [Concomitant]
     Active Substance: LORAZEPAM
     Dosage: UNK
     Dates: start: 2010, end: 2015
  27. DOCETAXEL. [Suspect]
     Active Substance: DOCETAXEL
     Dosage: 118 MG, CYCLIC, EVERY THREE WEEKS 6 CYCLES
     Dates: start: 20140123
  28. TAXOTERE [Suspect]
     Active Substance: DOCETAXEL
     Dosage: 118 MG, CYCLIC, EVERY THREE WEEKS 6 CYCLES
     Dates: start: 20140123
  29. HERCEPTIN [Concomitant]
     Active Substance: TRASTUZUMAB
     Indication: CHEMOTHERAPY
     Dosage: UNK
     Dates: start: 20131031, end: 20140213
  30. OMEPRAZOLE. [Concomitant]
     Active Substance: OMEPRAZOLE
     Dosage: UNK
     Dates: start: 2010, end: 2015
  31. ANASTROZOLE. [Concomitant]
     Active Substance: ANASTROZOLE
     Dosage: UNK
     Dates: start: 2010, end: 2015
  32. ANASTROZOLE. [Concomitant]
     Active Substance: ANASTROZOLE
     Dosage: UNK
     Dates: start: 20140306

REACTIONS (7)
  - Depression [Unknown]
  - Hair colour changes [Not Recovered/Not Resolved]
  - Alopecia [Not Recovered/Not Resolved]
  - Hair disorder [Not Recovered/Not Resolved]
  - Hair texture abnormal [Not Recovered/Not Resolved]
  - Madarosis [Not Recovered/Not Resolved]
  - Anxiety [Unknown]

NARRATIVE: CASE EVENT DATE: 20140813
